FAERS Safety Report 24945077 (Version 1)
Quarter: 2025Q1

REPORT INFORMATION
  Report Type: Spontaneous
  Country: US (occurrence: US)
  Receive Date: 20250208
  Receipt Date: 20250208
  Transmission Date: 20250409
  Serious: No
  Sender: TARO
  Company Number: US-TARO PHARMACEUTICALS USA INC.-2024TAR02929

PATIENT
  Age: 22 Year
  Sex: Female

DRUGS (1)
  1. ADAPALENE [Suspect]
     Active Substance: ADAPALENE
     Indication: Acne
     Dosage: PEA BEAN SIZE, ONCE A DAY AT NIGHT
     Route: 061
     Dates: start: 20240518, end: 202408

REACTIONS (2)
  - Therapeutic product effect decreased [Unknown]
  - Acne [Recovering/Resolving]

NARRATIVE: CASE EVENT DATE: 20240601
